FAERS Safety Report 4477775-9 (Version None)
Quarter: 2004Q4

REPORT INFORMATION
  Report Type: 
  Country: None (occurrence: None)
  Receive Date: 20041014
  Receipt Date: 20041001
  Transmission Date: 20050328
  Serious: Yes (Other)
  Sender: FDA-Public Use
  Company Number: 2003147756US

PATIENT
  Sex: Female
  Weight: 102.5 kg

DRUGS (4)
  1. CELEBREX [Suspect]
     Indication: SPINAL OSTEOARTHRITIS
     Dosage: SEE IMAGE
     Dates: start: 19990715
  2. CELEBREX [Suspect]
     Indication: SPINAL OSTEOARTHRITIS
     Dosage: SEE IMAGE
     Dates: start: 19990729
  3. LORTAB [Concomitant]
  4. SYNVISC [Concomitant]

REACTIONS (1)
  - GASTROINTESTINAL HAEMORRHAGE [None]
